FAERS Safety Report 10033486 (Version 1)
Quarter: 2014Q1

REPORT INFORMATION
  Report Type: Spontaneous
  Country: US (occurrence: US)
  Receive Date: 20140325
  Receipt Date: 20140325
  Transmission Date: 20141002
  Serious: Yes (Hospitalization)
  Sender: FDA-Public Use
  Company Number: US-BIOGENIDEC-2014BI023485

PATIENT
  Age: 40 Year
  Sex: Female

DRUGS (1)
  1. TYSABRI [Suspect]
     Indication: MULTIPLE SCLEROSIS
     Route: 042
     Dates: start: 20071023, end: 20131009

REACTIONS (4)
  - Influenza [Recovered/Resolved]
  - Pneumonia [Recovered/Resolved]
  - Blood pressure decreased [Recovered/Resolved]
  - Cognitive disorder [Not Recovered/Not Resolved]
